FAERS Safety Report 25747869 (Version 1)
Quarter: 2025Q3

REPORT INFORMATION
  Report Type: Report from Study
  Country: SA (occurrence: SA)
  Receive Date: 20250901
  Receipt Date: 20250901
  Transmission Date: 20251021
  Serious: Yes (Other)
  Sender: GILEAD
  Company Number: SA-GILEAD-2025-0726257

PATIENT
  Age: 63 Year
  Sex: Female

DRUGS (1)
  1. AXICABTAGENE CILOLEUCEL [Suspect]
     Active Substance: AXICABTAGENE CILOLEUCEL
     Indication: Diffuse large B-cell lymphoma
     Route: 065
     Dates: start: 202501, end: 202501

REACTIONS (1)
  - Diffuse large B-cell lymphoma [Unknown]
